FAERS Safety Report 12104382 (Version 2)
Quarter: 2016Q1

REPORT INFORMATION
  Report Type: Spontaneous
  Country: US (occurrence: US)
  Receive Date: 20160223
  Receipt Date: 20160322
  Transmission Date: 20160526
  Serious: Yes (Death, Other)
  Sender: FDA-Public Use
  Company Number: US-PAR PHARMACEUTICAL COMPANIES-2016SCPR015175

PATIENT

DRUGS (2)
  1. FENTANYL CITRATE. [Suspect]
     Active Substance: FENTANYL CITRATE
     Indication: SICKLE CELL ANAEMIA
     Dosage: 1 DF, EVERY 30 MINUTES TO 1 HOUR
     Route: 065
  2. FENTANYL CITRATE. [Suspect]
     Active Substance: FENTANYL CITRATE
     Indication: SICKLE CELL ANAEMIA
     Dosage: UNK UNK, UNKNOWN
     Route: 065
     Dates: start: 20101008

REACTIONS (2)
  - Off label use [Unknown]
  - Sickle cell anaemia [Fatal]

NARRATIVE: CASE EVENT DATE: 20101008
